FAERS Safety Report 4614658-5 (Version None)
Quarter: 2005Q2

REPORT INFORMATION
  Report Type: 
  Country: None (occurrence: None)
  Receive Date: 20050311
  Receipt Date: 20041108
  Transmission Date: 20051028
  Serious: No
  Sender: FDA-Public Use
  Company Number: 2004-BP-10962BP

PATIENT
  Age: 58 Year
  Sex: Female

DRUGS (8)
  1. SPIRIVA [Suspect]
     Indication: CHRONIC OBSTRUCTIVE PULMONARY DISEASE
     Dosage: 18 MCG (18 MCG, 1 IN 1 D), IH
     Route: 055
     Dates: start: 20040918
  2. FLONASE [Concomitant]
  3. SINGULAIR (MONTELUKAST) [Concomitant]
  4. TRIAMTERENE (TRIAMTERENE) [Concomitant]
  5. NEXIUM [Concomitant]
  6. ADVIL [Concomitant]
  7. COMBIVENT [Concomitant]
  8. FOSAMAX [Concomitant]

REACTIONS (2)
  - AGEUSIA [None]
  - DRUG INEFFECTIVE [None]
